FAERS Safety Report 5743572-7 (Version None)
Quarter: 2008Q2

REPORT INFORMATION
  Report Type: 
  Country: None (occurrence: None)
  Receive Date: 20080520
  Receipt Date: 20080513
  Transmission Date: 20081010
  Serious: Yes (Hospitalization, Other)
  Sender: FDA-Public Use
  Company Number: PHBS2008HK04561

PATIENT
  Age: 64 Year
  Sex: Male

DRUGS (3)
  1. PREDNISONE TAB [Suspect]
     Indication: TRANSPLANT REJECTION
     Dosage: 5 MG PER DAY
     Route: 065
  2. AZATHIOPRINE [Suspect]
     Indication: TRANSPLANT REJECTION
     Dosage: 50 MG PER DAY
     Route: 065
  3. CYCLOSPORINE [Suspect]
     Indication: HEART TRANSPLANT
     Dosage: 100 MG, PER DAY
     Route: 065

REACTIONS (15)
  - ADENOCARCINOMA [None]
  - ANAPLASTIC LARGE CELL LYMPHOMA T- AND NULL-CELL TYPES [None]
  - CALCULUS URINARY [None]
  - COLECTOMY [None]
  - COLON ADENOMA [None]
  - COLON CANCER [None]
  - COLONIC POLYP [None]
  - DYSPLASIA [None]
  - ESSENTIAL HYPERTENSION [None]
  - HEART TRANSPLANT REJECTION [None]
  - OSTEOPOROSIS [None]
  - RASH PAPULAR [None]
  - RENAL IMPAIRMENT [None]
  - TYPE 1 DIABETES MELLITUS [None]
  - VIRAL DNA TEST POSITIVE [None]
